FAERS Safety Report 9964118 (Version 2)
Quarter: 2014Q1

REPORT INFORMATION
  Report Type: Spontaneous
  Country: JP (occurrence: JP)
  Receive Date: 20140305
  Receipt Date: 20140331
  Transmission Date: 20141002
  Serious: Yes (Death)
  Sender: FDA-Public Use
  Company Number: JP-AMGEN-JPNSP2014015405

PATIENT
  Age: 73 Year
  Sex: Male

DRUGS (5)
  1. VECTIBIX [Suspect]
     Indication: COLON CANCER
     Dosage: 300 MG, UNK
     Route: 041
     Dates: start: 20120410, end: 201308
  2. VECTIBIX [Suspect]
     Dosage: 300 MG, UNK
     Route: 041
     Dates: start: 201310, end: 20140203
  3. IRINOTECAN HYDROCHLORIDE [Concomitant]
     Indication: COLON CANCER
     Dosage: UNK
     Route: 041
     Dates: start: 20120410
  4. FLUOROURACIL [Concomitant]
     Indication: COLON CANCER
     Dosage: UNK
     Route: 042
     Dates: start: 20120410
  5. CALCIUM LEVOFOLINATE [Concomitant]
     Indication: COLON CANCER
     Dosage: UNK
     Route: 041
     Dates: start: 20120410

REACTIONS (1)
  - Death [Fatal]
